FAERS Safety Report 5786804-1 (Version None)
Quarter: 2008Q2

REPORT INFORMATION
  Report Type: 
  Country: None (occurrence: None)
  Receive Date: 20080620
  Receipt Date: 20080610
  Transmission Date: 20081010
  Serious: Yes (Hospitalization)
  Sender: FDA-Public Use
  Company Number: B0525199A

PATIENT
  Age: 17 Year
  Sex: Male

DRUGS (7)
  1. LAMIVUDINE [Suspect]
     Indication: HIV INFECTION
  2. ABACAVIR SULFATE [Suspect]
     Indication: HIV INFECTION
  3. RIFAMPICIN [Concomitant]
  4. ISONIAZID [Concomitant]
  5. PYRAZINAMIDE [Concomitant]
  6. ETHAMBUTOL HYDROCHLORIDE [Concomitant]
  7. STAVUDINE [Concomitant]
     Indication: HIV INFECTION

REACTIONS (10)
  - BLOOD PRESSURE SYSTOLIC INSPIRATORY DECREASED [None]
  - CARDIAC TAMPONADE [None]
  - CHILLS [None]
  - HEART RATE INCREASED [None]
  - IMMUNE RECONSTITUTION SYNDROME [None]
  - PERICARDIAL EFFUSION [None]
  - PLEURITIC PAIN [None]
  - PYREXIA [None]
  - RESPIRATORY RATE INCREASED [None]
  - VENOUS PRESSURE JUGULAR INCREASED [None]
